FAERS Safety Report 21075296 (Version 1)
Quarter: 2022Q3

REPORT INFORMATION
  Report Type: Report from Study
  Country: BR (occurrence: BR)
  Receive Date: 20220713
  Receipt Date: 20220713
  Transmission Date: 20221026
  Serious: Yes (Other)
  Sender: FDA-Public Use
  Company Number: BR-ABBVIE-22K-020-4464153-00

PATIENT
  Age: 53 Year
  Sex: Female
  Weight: 78 kg

DRUGS (1)
  1. RINVOQ [Suspect]
     Active Substance: UPADACITINIB
     Indication: Rheumatoid arthritis
     Route: 048
     Dates: start: 20210806, end: 20220705

REACTIONS (5)
  - Sepsis [Unknown]
  - Inflammation [Not Recovered/Not Resolved]
  - Arthralgia [Not Recovered/Not Resolved]
  - Erythema [Unknown]
  - Feeling hot [Unknown]

NARRATIVE: CASE EVENT DATE: 20220705
